FAERS Safety Report 10216388 (Version 6)
Quarter: 2015Q2

REPORT INFORMATION
  Report Type: Report from Study
  Country: US (occurrence: US)
  Receive Date: 20140604
  Receipt Date: 20150424
  Transmission Date: 20150821
  Serious: Yes (Hospitalization, Other)
  Sender: FDA-Public Use
  Company Number: PHHY2014US066571

PATIENT
  Age: 69 Year
  Sex: Male
  Weight: 63 kg

DRUGS (22)
  1. MYCOPHENOLATE MOFETIL. [Suspect]
     Active Substance: MYCOPHENOLATE MOFETIL
     Dosage: 500 MG, BID
     Route: 048
     Dates: start: 20140128, end: 20140129
  2. TACROLIMUS. [Suspect]
     Active Substance: TACROLIMUS
     Dosage: 2 MG, BID
     Route: 048
     Dates: start: 20131217, end: 20140128
  3. ASPIRIN. [Concomitant]
     Active Substance: ASPIRIN
     Indication: PRODUCT USED FOR UNKNOWN INDICATION
     Dosage: 81 MG, UNK
     Route: 048
     Dates: start: 20131010
  4. SIMULECT [Suspect]
     Active Substance: BASILIXIMAB
     Dosage: 20 MG, TWO TIMES DOSE
     Route: 042
     Dates: start: 20130926, end: 20130926
  5. TACROLIMUS. [Suspect]
     Active Substance: TACROLIMUS
     Dosage: 1 MG, BID
     Route: 048
     Dates: start: 20131029, end: 20131216
  6. BACTRIM [Suspect]
     Active Substance: SULFAMETHOXAZOLE\TRIMETHOPRIM
     Indication: PRODUCT USED FOR UNKNOWN INDICATION
     Dosage: 1 DF, THRICE WEEKLY
     Route: 048
     Dates: start: 20131003, end: 20140127
  7. ATORVASTATIN [Concomitant]
     Active Substance: ATORVASTATIN
     Indication: PRODUCT USED FOR UNKNOWN INDICATION
     Dosage: 10 MG
     Route: 065
     Dates: start: 20131017
  8. IBANDRONATE [Concomitant]
     Active Substance: IBANDRONATE SODIUM
     Indication: PRODUCT USED FOR UNKNOWN INDICATION
     Dosage: 150 MG
     Route: 065
     Dates: start: 20131031
  9. PREDNISONE. [Concomitant]
     Active Substance: PREDNISONE
     Indication: PRODUCT USED FOR UNKNOWN INDICATION
     Dosage: 5 MG
     Route: 065
     Dates: start: 20130924
  10. MYCOPHENOLATE MOFETIL. [Suspect]
     Active Substance: MYCOPHENOLATE MOFETIL
     Indication: RENAL TRANSPLANT
     Dosage: 1000 MG, BID
     Route: 048
     Dates: start: 20130923, end: 20140127
  11. TACROLIMUS. [Suspect]
     Active Substance: TACROLIMUS
     Indication: RENAL TRANSPLANT
     Dosage: 5 MG (3.0 MG AM AND 2.0 MG PM)
     Route: 048
     Dates: start: 20130926, end: 20130929
  12. TACROLIMUS. [Suspect]
     Active Substance: TACROLIMUS
     Dosage: 1 MG, BID
     Route: 048
     Dates: start: 20140130, end: 20140210
  13. HUMALOG [Concomitant]
     Active Substance: INSULIN LISPRO
     Indication: PRODUCT USED FOR UNKNOWN INDICATION
     Dosage: 100 U/ML
     Route: 065
     Dates: start: 20131210
  14. TACROLIMUS. [Suspect]
     Active Substance: TACROLIMUS
     Dosage: 3 MG (2 MG IN THE MORNING AND 1 MG IN EVENING)
     Route: 048
     Dates: start: 20130930, end: 20131003
  15. LANTUS [Concomitant]
     Active Substance: INSULIN GLARGINE
     Indication: PRODUCT USED FOR UNKNOWN INDICATION
     Dosage: 100 U/ML
     Route: 065
     Dates: start: 20131017
  16. TACROLIMUS. [Suspect]
     Active Substance: TACROLIMUS
     Dosage: 2 MG IN MORNING AND 1.5 MG IN EVENING)
     Route: 048
     Dates: start: 20140129, end: 20140129
  17. SIMULECT [Suspect]
     Active Substance: BASILIXIMAB
     Indication: RENAL TRANSPLANT
     Dosage: 20 MG, TWO TIMES DOSE
     Route: 042
     Dates: start: 20130923, end: 20130923
  18. MYCOPHENOLATE MOFETIL. [Suspect]
     Active Substance: MYCOPHENOLATE MOFETIL
     Dosage: 750 MG, BID
     Route: 048
     Dates: start: 20140130
  19. TACROLIMUS. [Suspect]
     Active Substance: TACROLIMUS
     Dosage: 1 MG, BID
     Route: 048
     Dates: start: 20131004, end: 20131025
  20. AMOXICILLIN. [Concomitant]
     Active Substance: AMOXICILLIN
     Indication: PRODUCT USED FOR UNKNOWN INDICATION
     Dosage: UNK
     Route: 065
     Dates: start: 20131112
  21. COREG [Concomitant]
     Active Substance: CARVEDILOL
     Indication: PRODUCT USED FOR UNKNOWN INDICATION
     Dosage: 3.125 MG
     Route: 065
     Dates: start: 20140107
  22. PEPCID [Concomitant]
     Active Substance: FAMOTIDINE
     Indication: PRODUCT USED FOR UNKNOWN INDICATION
     Dosage: 20 MG
     Route: 065
     Dates: start: 20131210

REACTIONS (40)
  - Dysarthria [Recovered/Resolved]
  - Vertebrobasilar insufficiency [Unknown]
  - Pyrexia [Unknown]
  - Aphasia [Unknown]
  - Cerebral artery stenosis [Unknown]
  - Left ventricular hypertrophy [Unknown]
  - Night blindness [Unknown]
  - Arteriosclerosis [Unknown]
  - Visual impairment [Unknown]
  - Cough [Unknown]
  - Non-cardiac chest pain [Recovered/Resolved]
  - Transient ischaemic attack [Unknown]
  - Cerebral small vessel ischaemic disease [Unknown]
  - Mitral valve stenosis [Unknown]
  - Blood urea increased [Unknown]
  - Respiratory syncytial virus infection [Recovered/Resolved]
  - Dyspnoea [Unknown]
  - Left atrial dilatation [Unknown]
  - Blood glucose increased [Unknown]
  - Vomiting [Recovered/Resolved]
  - Coronary artery stenosis [Unknown]
  - White matter lesion [Unknown]
  - Cerebral haemosiderin deposition [Unknown]
  - Blood creatinine increased [Unknown]
  - Neutropenia [Recovered/Resolved]
  - Non-cardiac chest pain [Recovered/Resolved]
  - Carotid artery stenosis [Unknown]
  - Mitral valve incompetence [Unknown]
  - Tachycardia [Unknown]
  - Diarrhoea [Recovered/Resolved]
  - Sputum discoloured [Unknown]
  - Chest discomfort [Unknown]
  - Productive cough [Unknown]
  - Mitral valve calcification [Unknown]
  - Acquired diaphragmatic eventration [Unknown]
  - Hypertension [Unknown]
  - Nausea [Recovered/Resolved]
  - Leukocytosis [Unknown]
  - Pleuritic pain [Unknown]
  - Leukopenia [Unknown]

NARRATIVE: CASE EVENT DATE: 20140127
